FAERS Safety Report 25608939 (Version 2)
Quarter: 2025Q3

REPORT INFORMATION
  Report Type: Spontaneous
  Country: EU (occurrence: EU)
  Receive Date: 20250726
  Receipt Date: 20250825
  Transmission Date: 20251021
  Serious: Yes (Hospitalization)
  Sender: CELLTRION
  Company Number: EU-CELLTRION INC.-2025DE024969

PATIENT

DRUGS (7)
  1. ADALIMUMAB [Suspect]
     Active Substance: ADALIMUMAB
     Indication: Hidradenitis
     Dosage: 40 MG, WEEKLY
     Route: 058
  2. ADALIMUMAB [Suspect]
     Active Substance: ADALIMUMAB
  3. CLINDAMYCIN [Concomitant]
     Active Substance: CLINDAMYCIN
     Indication: Hidradenitis
     Route: 048
  4. CLINDAMYCIN [Concomitant]
     Active Substance: CLINDAMYCIN
     Route: 048
  5. FERAPPLIC [Concomitant]
     Indication: Anaemia
     Route: 042
  6. ERYTHROPOIETIN [Concomitant]
     Active Substance: ERYTHROPOIETIN
     Indication: Anaemia
     Route: 058
  7. HUMAN RED BLOOD CELL [Concomitant]
     Active Substance: HUMAN RED BLOOD CELL
     Indication: Anaemia

REACTIONS (5)
  - Condition aggravated [Unknown]
  - Disease progression [Recovering/Resolving]
  - Hidradenitis [Recovering/Resolving]
  - Treatment failure [Unknown]
  - Drug ineffective [Unknown]
